FAERS Safety Report 8390549-1 (Version None)
Quarter: 2012Q2

REPORT INFORMATION
  Report Type: 
  Country: None (occurrence: None)
  Receive Date: 20120529
  Receipt Date: 20120517
  Transmission Date: 20120825
  Serious: Yes (Other)
  Sender: FDA-Public Use
  Company Number: US-JNJFOC-20120515469

PATIENT
  Sex: Female
  Weight: 41.28 kg

DRUGS (1)
  1. REMICADE [Suspect]
     Indication: CROHN'S DISEASE
     Dosage: 200-400 MG
     Route: 042
     Dates: start: 20070108, end: 20110622

REACTIONS (1)
  - MULTIPLE MYELOMA [None]
